FAERS Safety Report 8788229 (Version 1)
Quarter: 2012Q4

REPORT INFORMATION
  Report Type: 
  Country: US (occurrence: US)
  Receive Date: 20120914
  Receipt Date: 20120914
  Transmission Date: 20130627
  Serious: No
  Sender: FDA-Public Use
  Company Number: US-VERTEX PHARMACEUTICAL INC.-AE-2012-010334

PATIENT

DRUGS (18)
  1. INCIVEK [Suspect]
     Indication: HEPATITIS C
     Route: 048
  2. RIBAVIRIN [Concomitant]
     Indication: HEPATITIS C
     Dates: start: 20120709
  3. PEGASYS [Concomitant]
     Indication: HEPATITIS C
  4. SINGULAIR [Concomitant]
  5. PANTOPRAZOLE [Concomitant]
  6. TRICOR [Concomitant]
  7. NASONEX SPR [Concomitant]
  8. LAMOTRIGINE [Concomitant]
  9. GABAPENTIN [Concomitant]
  10. LOSARTAN/ HCT [Concomitant]
  11. LEVOTHYROXIN [Concomitant]
  12. METOPROLOL ER [Concomitant]
  13. LEXAPRO [Concomitant]
  14. OXYCODONE [Concomitant]
  15. OXYCONTIN CR [Concomitant]
  16. PROAIR HFA AER [Concomitant]
  17. ASPIRIN ADLT [Concomitant]
  18. COMBIVENT AER [Concomitant]

REACTIONS (2)
  - White blood cell count decreased [Not Recovered/Not Resolved]
  - Anaemia [Unknown]
